FAERS Safety Report 9698854 (Version 1)
Quarter: 2013Q4

REPORT INFORMATION
  Report Type: Spontaneous
  Country: US (occurrence: US)
  Receive Date: 20131120
  Receipt Date: 20131120
  Transmission Date: 20140711
  Serious: Yes (Congenital Anomaly)
  Sender: FDA-Public Use
  Company Number: US-ROXANE LABORATORIES, INC.-2013-RO-01841RO

PATIENT
  Sex: 0
  Weight: 3 kg

DRUGS (3)
  1. MYCOPHENOLATE MOFETIL [Suspect]
     Indication: EXPOSURE VIA FATHER
  2. PREDNISONE [Suspect]
     Indication: EXPOSURE VIA FATHER
  3. CYCLOSPORINE [Suspect]
     Indication: EXPOSURE VIA FATHER

REACTIONS (1)
  - Ventricular septal defect [Unknown]
